FAERS Safety Report 11310916 (Version 2)
Quarter: 2015Q3

REPORT INFORMATION
  Report Type: Report from Study
  Country: IN (occurrence: IN)
  Receive Date: 20150726
  Receipt Date: 20150910
  Transmission Date: 20151125
  Serious: Yes (Death, Other)
  Sender: FDA-Public Use
  Company Number: IN-009507513-1507IND009728

PATIENT

DRUGS (1)
  1. EPTIFIBATIDE. [Suspect]
     Active Substance: EPTIFIBATIDE
     Indication: POSTINFARCTION ANGINA
     Dosage: A BOLUS DOSE OF 180 MICRO-G/KG FOLLOWED BY AN INFUSION OF 2.0 MICRO-G/KG/MIN FOR 24 HOURS
     Route: 042

REACTIONS (4)
  - Haemorrhage intracranial [Unknown]
  - Haemorrhage coronary artery [Unknown]
  - Haemorrhage [Unknown]
  - Haemorrhage intracranial [Fatal]
